FAERS Safety Report 13265348 (Version 7)
Quarter: 2017Q3

REPORT INFORMATION
  Report Type: Report from Study
  Country: US (occurrence: US)
  Receive Date: 20170223
  Receipt Date: 20170915
  Transmission Date: 20171127
  Serious: Yes (Hospitalization)
  Sender: FDA-Public Use
  Company Number: US-GILEAD-2017-0259222

PATIENT
  Age: 82 Year
  Sex: Female
  Weight: 71.66 kg

DRUGS (4)
  1. VERAPAMIL [Concomitant]
     Active Substance: VERAPAMIL HYDROCHLORIDE
  2. AMBRISENTAN [Suspect]
     Active Substance: AMBRISENTAN
     Indication: PULMONARY ARTERIAL HYPERTENSION
     Dosage: 5 MG, QD
     Route: 065
     Dates: start: 20160502
  3. ADEMPAS [Suspect]
     Active Substance: RIOCIGUAT
     Indication: PRODUCT USED FOR UNKNOWN INDICATION
     Route: 065
  4. COUMADIN [Concomitant]
     Active Substance: WARFARIN SODIUM

REACTIONS (5)
  - Nasopharyngitis [Not Recovered/Not Resolved]
  - Dyspnoea exertional [Recovering/Resolving]
  - Headache [Recovered/Resolved]
  - Cough [Unknown]
  - Nasopharyngitis [Unknown]
